FAERS Safety Report 21918761 (Version 4)
Quarter: 2024Q1

REPORT INFORMATION
  Report Type: Spontaneous
  Country: PK (occurrence: PK)
  Receive Date: 20230127
  Receipt Date: 20240118
  Transmission Date: 20240409
  Serious: Yes (Other)
  Sender: FDA-Public Use
  Company Number: PK-PFIZER INC-PV202300013847

PATIENT
  Age: 68 Year
  Sex: Female

DRUGS (12)
  1. ENBREL [Suspect]
     Active Substance: ETANERCEPT
     Indication: Product used for unknown indication
     Dosage: 50 MILLIGRAM, QWK (50 MG, WEEKLY)
     Route: 058
     Dates: start: 20221020
  2. ENBREL [Suspect]
     Active Substance: ETANERCEPT
     Dosage: 50 MILLIGRAM (50 MG, EVERY 10TH DAY)
     Route: 058
  3. HYDROXYCHLOROQUINE SULFATE [Concomitant]
     Active Substance: HYDROXYCHLOROQUINE SULFATE
     Dosage: 200 MILLIGRAM (200 MG, 1 TAB IN MORNING)
  4. FOLIC ACID [Concomitant]
     Active Substance: FOLIC ACID
     Dosage: 5 MILLIGRAM, QD (5 MG, 1XTABLETS, ONCE A DAY, AFTER MEAL)
  5. SOMNO [Concomitant]
     Dosage: 10 MILLIGRAM (10 MG, 1XTABLETS, ONCE A DAY 1 CONTINUE)
  6. Sunny d [Concomitant]
     Dosage: UNK (1XCAPSULES, ONCE A MONTH, AFTER MEAL)
  7. RISEK INSTA [Concomitant]
     Dosage: 20 MILLIGRAM (20 MG, 1 CAP IN MORNING BEFORE MEAL, CONTINUE)
  8. OSTEOCARE CALCIUM MAGNESIUM VITAMIN D3 [Concomitant]
     Dosage: UNK (1 TAB IN AFTERNOON AFTER MEAL, CONTINUE)
  9. ALLOPURINOL [Concomitant]
     Active Substance: ALLOPURINOL
     Dosage: 300 MILLIGRAM (300 MG, 1XTABLETS, ONCE A DAY, AFTER MEAL, 1 CONTINUE)
  10. PANADOL [Concomitant]
     Active Substance: ACETAMINOPHEN
     Dosage: 500 MILLIGRAM (2X TABLETS, ONCE A DAY, AFTER MEAL, WHEN REQUIRED)
  11. CYTOTREXATE [Concomitant]
     Dosage: 10 MILLIGRAM (10 MG, 1 X TABLETS, ONCE A WEEK CONTINUE)
  12. CARA CLOT [Concomitant]
     Dosage: 10 MILLIGRAM (10 MG, 1 X TABLETS, THREE TIMES A WEEK CONTINUE)

REACTIONS (3)
  - Drug ineffective [Unknown]
  - Lower respiratory tract infection [Unknown]
  - Off label use [Unknown]
